FAERS Safety Report 6738848-0 (Version None)
Quarter: 2010Q2

REPORT INFORMATION
  Report Type: 
  Country: None (occurrence: None)
  Receive Date: 20100520
  Receipt Date: 20100512
  Transmission Date: 20101027
  Serious: Yes (Other)
  Sender: FDA-Public Use
  Company Number: 2010SP021284

PATIENT
  Age: 22 Year
  Sex: Female
  Weight: 83 kg

DRUGS (2)
  1. IMPLANON [Suspect]
     Indication: CONTRACEPTION
     Dosage: 68 MG; SBDE
     Route: 059
     Dates: start: 20070710
  2. IMPLANON [Suspect]

REACTIONS (6)
  - BLOOD CHOLESTEROL INCREASED [None]
  - FIBROCYSTIC BREAST DISEASE [None]
  - HORMONE LEVEL ABNORMAL [None]
  - HUMAN PAPILLOMA VIRUS TEST POSITIVE [None]
  - OVARIAN CYST [None]
  - WEIGHT INCREASED [None]
